FAERS Safety Report 5281309-9 (Version None)
Quarter: 2007Q1

REPORT INFORMATION
  Report Type: 
  Country: None (occurrence: None)
  Receive Date: 20061221
  Receipt Date: 20061101
  Transmission Date: 20070707
  Serious: Yes (Other)
  Sender: FDA-Public Use
  Company Number: PHEH2006US13603

PATIENT
  Age: 15 Year
  Sex: Male

DRUGS (1)
  1. FOCALIN [Suspect]
     Dosage: 20 MG, QD, ORAL
     Route: 048

REACTIONS (2)
  - DEPRESSION [None]
  - IRRITABILITY [None]
